FAERS Safety Report 15075297 (Version 1)
Quarter: 2018Q2

REPORT INFORMATION
  Report Type: Spontaneous
  Country: US (occurrence: US)
  Receive Date: 20180627
  Receipt Date: 20180627
  Transmission Date: 20180711
  Serious: Yes (Other)
  Sender: FDA-Public Use
  Company Number: US-SAOL THERAPEUTICS-2018SAO00212

PATIENT
  Age: 63 Year

DRUGS (5)
  1. FENTANYL. [Suspect]
     Active Substance: FENTANYL
     Dosage: 150 ?G, \DAY
     Route: 037
     Dates: start: 20180301
  2. BACLOFEN. [Suspect]
     Active Substance: BACLOFEN
     Indication: PAIN
     Dosage: 80.03 ?G, \DAY
     Route: 037
  3. FENTANYL. [Suspect]
     Active Substance: FENTANYL
     Dosage: 200.07 ?G, \DAY
     Route: 037
     Dates: end: 20180301
  4. BACLOFEN. [Suspect]
     Active Substance: BACLOFEN
     Dosage: 60 ?G, \DAY
     Route: 037
     Dates: end: 20180301
  5. FENTANYL. [Suspect]
     Active Substance: FENTANYL
     Dosage: 150 ?G, \DAY
     Route: 037

REACTIONS (5)
  - Implant site extravasation [Unknown]
  - Device dislocation [Unknown]
  - Drug ineffective for unapproved indication [Unknown]
  - Therapy non-responder [Unknown]
  - Pain [Unknown]

NARRATIVE: CASE EVENT DATE: 201711
